FAERS Safety Report 18570067 (Version 1)
Quarter: 2020Q4

REPORT INFORMATION
  Report Type: Spontaneous
  Country: US (occurrence: US)
  Receive Date: 20201201
  Receipt Date: 20201201
  Transmission Date: 20210114
  Serious: Yes (Other)
  Sender: FDA-Public Use
  Company Number: None

PATIENT
  Age: 62 Year
  Sex: Female
  Weight: 99.79 kg

DRUGS (1)
  1. ATORVASTATIN 20MG [Suspect]
     Active Substance: ATORVASTATIN
     Route: 048
     Dates: start: 201506, end: 201506

REACTIONS (2)
  - Rash [None]
  - Product substitution issue [None]
